FAERS Safety Report 14839618 (Version 1)
Quarter: 2018Q2

REPORT INFORMATION
  Report Type: Report from Study
  Country: US (occurrence: US)
  Receive Date: 20180502
  Receipt Date: 20180502
  Transmission Date: 20180711
  Serious: Yes (Hospitalization)
  Sender: FDA-Public Use
  Company Number: PHHO2016US018024

PATIENT
  Age: 60 Year
  Sex: Male

DRUGS (1)
  1. RYDAPT [Suspect]
     Active Substance: MIDOSTAURIN
     Indication: ACUTE MYELOID LEUKAEMIA
     Dosage: 100 MG, BID
     Route: 048
     Dates: start: 20161105, end: 20161110

REACTIONS (3)
  - Enterocolitis [Recovered/Resolved]
  - Gastrointestinal haemorrhage [Recovered/Resolved]
  - Small intestinal obstruction [Recovered/Resolved]

NARRATIVE: CASE EVENT DATE: 20161202
